FAERS Safety Report 19398854 (Version 1)
Quarter: 2021Q2

REPORT INFORMATION
  Report Type: Spontaneous
  Country: US (occurrence: US)
  Receive Date: 20210610
  Receipt Date: 20210610
  Transmission Date: 20210717
  Serious: Yes (Hospitalization)
  Sender: FDA-Public Use
  Company Number: None

PATIENT
  Age: 64 Year
  Sex: Male
  Weight: 85.3 kg

DRUGS (3)
  1. ABIRATERONE ACETATE. [Suspect]
     Active Substance: ABIRATERONE ACETATE
     Dates: end: 20191207
  2. PREDNISONE. [Suspect]
     Active Substance: PREDNISONE
     Dates: end: 20191207
  3. CABAZITAXEL [Suspect]
     Active Substance: CABAZITAXEL
     Dates: end: 20181120

REACTIONS (3)
  - Blood potassium decreased [None]
  - Gallbladder obstruction [None]
  - Hepatic enzyme increased [None]

NARRATIVE: CASE EVENT DATE: 20191205
